FAERS Safety Report 4829659-1 (Version None)
Quarter: 2005Q4

REPORT INFORMATION
  Report Type: 
  Country: None (occurrence: None)
  Receive Date: 20051116
  Receipt Date: 20051004
  Transmission Date: 20060501
  Serious: Yes (Death)
  Sender: FDA-Public Use
  Company Number: US-MERCK-0510USA03089

PATIENT
  Age: 55 Year
  Sex: Male
  Weight: 82 kg

DRUGS (14)
  1. VIOXX [Suspect]
     Indication: BACK PAIN
     Route: 048
     Dates: start: 20020501, end: 20031003
  2. ALBUTEROL [Concomitant]
     Route: 065
  3. ALLEGRA [Concomitant]
     Route: 065
  4. SKELAXIN [Concomitant]
     Route: 065
  5. ZYRTEC [Concomitant]
     Route: 065
  6. GUAIFENEX [Concomitant]
     Route: 065
  7. DILTIA XT [Concomitant]
     Route: 065
  8. ERY-TAB [Concomitant]
     Route: 065
  9. PULMICORT [Concomitant]
     Route: 065
  10. CIPRO [Concomitant]
     Route: 065
  11. MAXAIR [Concomitant]
     Route: 065
  12. ZITHROMAX [Concomitant]
     Route: 065
  13. AZMACORT [Concomitant]
     Route: 065
  14. AXID [Concomitant]
     Route: 065

REACTIONS (2)
  - ACUTE MYOCARDIAL INFARCTION [None]
  - HYPERTENSION [None]
